FAERS Safety Report 10091039 (Version 2)
Quarter: 2014Q2

REPORT INFORMATION
  Report Type: Spontaneous
  Country: US (occurrence: US)
  Receive Date: 20140421
  Receipt Date: 20140606
  Transmission Date: 20141212
  Serious: Yes (Hospitalization)
  Sender: FDA-Public Use
  Company Number: US-TEVA-476606USA

PATIENT
  Age: 55 Year
  Sex: Female
  Weight: 89.44 kg

DRUGS (16)
  1. FENTANYL [Suspect]
     Indication: BREAKTHROUGH PAIN
     Dosage: LOLLIPOP FORM
     Dates: start: 201306
  2. FENTANYL [Suspect]
     Indication: NEURALGIA
  3. MORPHINE ER [Concomitant]
     Indication: PAIN
  4. LIDODERM [Concomitant]
     Indication: PAIN
     Route: 062
  5. MORPHINE IMMEDIATE RELEASE [Concomitant]
     Indication: PAIN
  6. VALIUM [Concomitant]
     Indication: MUSCLE SPASMS
  7. PHENERGAN [Concomitant]
     Indication: NAUSEA
  8. FLEXERIL [Concomitant]
     Indication: MUSCLE SPASMS
  9. PAROXETINE [Concomitant]
     Indication: DEPRESSION
  10. PAROXETINE [Concomitant]
     Indication: NERVOUSNESS
  11. LIDOCAINE [Concomitant]
     Indication: PAIN
  12. TRAMADOL [Concomitant]
     Indication: PAIN
  13. PRILOCAINE [Concomitant]
     Indication: PAIN
  14. MELOXICAM [Concomitant]
     Indication: PAIN
  15. AMITRIPTYLINE [Concomitant]
     Indication: NEURALGIA
  16. ORENCIA [Concomitant]
     Indication: ARTHRITIS

REACTIONS (5)
  - Postoperative adhesion [Recovered/Resolved]
  - Hypokinesia [Recovered/Resolved]
  - Pain [Recovered/Resolved]
  - Anaesthetic complication [Recovered/Resolved]
  - Renal disorder [Unknown]
